FAERS Safety Report 11572398 (Version 1)
Quarter: 2015Q3

REPORT INFORMATION
  Report Type: Report from Study
  Country: TR (occurrence: TR)
  Receive Date: 20150929
  Receipt Date: 20150929
  Transmission Date: 20151125
  Serious: Yes (Other)
  Sender: FDA-Public Use
  Company Number: TR-BAYER-2015-410888

PATIENT
  Age: 57 Year
  Sex: Female

DRUGS (4)
  1. DAFLON [DIOSMIN] [Concomitant]
     Dosage: UNK
  2. BETAFERON [Suspect]
     Active Substance: INTERFERON BETA-1B
     Dosage: UNK
  3. ASPIRIN. [Concomitant]
     Active Substance: ASPIRIN
     Dosage: 300 MG, UNK
  4. NATURAL VITAMIN E [Concomitant]
     Dosage: UNK

REACTIONS (6)
  - Cardiac disorder [None]
  - Heart valve incompetence [None]
  - Injection site rash [None]
  - Drug administration error [None]
  - Injection site nodule [None]
  - Cataract [None]

NARRATIVE: CASE EVENT DATE: 2012
